FAERS Safety Report 15523548 (Version 1)
Quarter: 2018Q4

REPORT INFORMATION
  Report Type: Spontaneous
  Country: FR (occurrence: FR)
  Receive Date: 20181018
  Receipt Date: 20181018
  Transmission Date: 20190205
  Serious: Yes (Hospitalization)
  Sender: FDA-Public Use
  Company Number: FR-TEVA-2018-FR-965627

PATIENT
  Age: 82 Year
  Sex: Female
  Weight: 60 kg

DRUGS (4)
  1. ATORVASTATINE [Concomitant]
     Active Substance: ATORVASTATIN
     Dosage: 40 MILLIGRAM DAILY;
     Route: 048
  2. DUOPLAVIN 75 MG/75 MG, COMPRIM? PELLICUL? [Suspect]
     Active Substance: ASPIRIN\CLOPIDOGREL
     Indication: STENT PLACEMENT
     Dosage: 1 DOSAGE FORMS DAILY;
     Route: 048
     Dates: end: 20180816
  3. PAROXETINE. [Suspect]
     Active Substance: PAROXETINE
     Indication: PRODUCT USED FOR UNKNOWN INDICATION
     Dosage: 1 DOSAGE FORMS DAILY;
     Route: 048
  4. BISOCE 1,25 MG, COMPRIM? PELLICUL? [Concomitant]
     Active Substance: BISOPROLOL FUMARATE
     Dosage: 1 DOSAGE FORMS DAILY;
     Route: 048

REACTIONS (1)
  - Subdural haematoma [Recovered/Resolved]

NARRATIVE: CASE EVENT DATE: 20180816
